FAERS Safety Report 7749072-7 (Version None)
Quarter: 2011Q3

REPORT INFORMATION
  Report Type: 
  Country: None (occurrence: None)
  Receive Date: 20110909
  Receipt Date: 20110826
  Transmission Date: 20111222
  Serious: Yes (Hospitalization, Other)
  Sender: FDA-Public Use
  Company Number: 2011SP041919

PATIENT
  Age: 47 Year
  Sex: Male
  Weight: 87.9978 kg

DRUGS (8)
  1. DILANTIN [Concomitant]
  2. CLARINEX D 24 HOUR [Suspect]
     Indication: SEASONAL ALLERGY
     Dosage: UNK;PO
     Route: 048
     Dates: start: 20100501, end: 20100526
  3. TYLENOL-500 [Concomitant]
  4. SUDAFED 12 HOUR [Concomitant]
  5. FLONASE [Concomitant]
  6. CAFFEINE [Suspect]
     Indication: PRODUCT USED FOR UNKNOWN INDICATION
  7. KEPPRA [Concomitant]
  8. BENADRYL [Concomitant]

REACTIONS (4)
  - STATUS EPILEPTICUS [None]
  - PNEUMONIA [None]
  - LOSS OF CONSCIOUSNESS [None]
  - GRAND MAL CONVULSION [None]
